FAERS Safety Report 11933673 (Version 2)
Quarter: 2016Q1

REPORT INFORMATION
  Report Type: Spontaneous
  Country: US (occurrence: US)
  Receive Date: 20160121
  Receipt Date: 20160222
  Transmission Date: 20160526
  Serious: Yes (Hospitalization)
  Sender: FDA-Public Use
  Company Number: US-BEH-2016057813

PATIENT
  Sex: Male
  Weight: 84 kg

DRUGS (31)
  1. CYMBALTA [Concomitant]
     Active Substance: DULOXETINE HYDROCHLORIDE
  2. POTASSIUM [Concomitant]
     Active Substance: POTASSIUM
  3. MULTIVITAMINS [Concomitant]
     Active Substance: VITAMINS
  4. HIZENTRA [Suspect]
     Active Substance: HUMAN IMMUNOGLOBULIN G
     Indication: SELECTIVE IGG SUBCLASS DEFICIENCY
     Dosage: 2 GM 10 ML VIAL
     Route: 058
     Dates: start: 20120125
  5. ACETAMINOPHEN. [Concomitant]
     Active Substance: ACETAMINOPHEN
  6. DIPHENHYDRAMINE. [Concomitant]
     Active Substance: DIPHENHYDRAMINE
  7. LYRICA [Concomitant]
     Active Substance: PREGABALIN
  8. OXYCODONE [Concomitant]
     Active Substance: OXYCODONE
  9. SINGULAIR [Concomitant]
     Active Substance: MONTELUKAST SODIUM
  10. PANTOPRAZOLE [Concomitant]
     Active Substance: PANTOPRAZOLE SODIUM
  11. MIRALAX [Concomitant]
     Active Substance: POLYETHYLENE GLYCOL 3350
  12. LMX [Concomitant]
     Active Substance: LIDOCAINE
  13. BUMETANIDE. [Concomitant]
     Active Substance: BUMETANIDE
  14. PAXIL [Concomitant]
     Active Substance: PAROXETINE HYDROCHLORIDE
  15. LIDOCAINE/PRILOCAINE [Concomitant]
  16. DUONEB [Concomitant]
     Active Substance: ALBUTEROL SULFATE\IPRATROPIUM BROMIDE
  17. EPIPEN [Concomitant]
     Active Substance: EPINEPHRINE
  18. TAMSULOSIN [Concomitant]
     Active Substance: TAMSULOSIN
  19. LASIX [Concomitant]
     Active Substance: FUROSEMIDE
  20. LYRICA [Concomitant]
     Active Substance: PREGABALIN
  21. CRESTOR [Concomitant]
     Active Substance: ROSUVASTATIN CALCIUM
  22. FISH OIL [Concomitant]
     Active Substance: FISH OIL
  23. PLAVIX [Concomitant]
     Active Substance: CLOPIDOGREL BISULFATE
  24. SPIRONOLACTONE. [Concomitant]
     Active Substance: SPIRONOLACTONE
  25. AZELASTINE [Concomitant]
     Active Substance: AZELASTINE
  26. SYMBICORT [Concomitant]
     Active Substance: BUDESONIDE\FORMOTEROL FUMARATE DIHYDRATE
  27. MORPHINE [Concomitant]
     Active Substance: MORPHINE
  28. HIZENTRA [Suspect]
     Active Substance: HUMAN IMMUNOGLOBULIN G
     Dosage: 10 GM 50 ML VIAL
     Route: 058
     Dates: start: 20120125
  29. LISINOPRIL. [Concomitant]
     Active Substance: LISINOPRIL
  30. ASPIRIN. [Concomitant]
     Active Substance: ASPIRIN
  31. VITAMIN D [Concomitant]
     Active Substance: CHOLECALCIFEROL

REACTIONS (1)
  - Pneumonia [Unknown]
